FAERS Safety Report 4891013-4 (Version None)
Quarter: 2006Q1

REPORT INFORMATION
  Report Type: 
  Country: None (occurrence: None)
  Receive Date: 20060124
  Receipt Date: 20060124
  Transmission Date: 20060701
  Serious: Yes (Other)
  Sender: FDA-Public Use
  Company Number: None

PATIENT
  Age: 28 Year
  Sex: Female
  Weight: 66.2252 kg

DRUGS (2)
  1. ZOLOFT [Suspect]
     Indication: ANXIETY
     Dosage: .50 MG ONCE A DAY PO
     Route: 048
     Dates: start: 20000605, end: 20050104
  2. ZOLOFT [Suspect]
     Indication: DEPRESSION
     Dosage: .50 MG ONCE A DAY PO
     Route: 048
     Dates: start: 20000605, end: 20050104

REACTIONS (6)
  - DRUG WITHDRAWAL SYNDROME [None]
  - FATIGUE [None]
  - FEELING ABNORMAL [None]
  - IRRITABILITY [None]
  - MOOD ALTERED [None]
  - SOCIAL AVOIDANT BEHAVIOUR [None]
